FAERS Safety Report 25332905 (Version 2)
Quarter: 2025Q2

REPORT INFORMATION
  Report Type: Spontaneous
  Country: US (occurrence: US)
  Receive Date: 20250519
  Receipt Date: 20250627
  Transmission Date: 20250717
  Serious: No
  Sender: SANOFI AVENTIS
  Company Number: US-SA-2025SA141707

PATIENT
  Age: 26 Year
  Sex: Female

DRUGS (3)
  1. DUPIXENT [Suspect]
     Active Substance: DUPILUMAB
     Indication: Asthma
     Dosage: 300 MG, QOW
     Route: 058
     Dates: start: 202308
  2. DUPIXENT [Suspect]
     Active Substance: DUPILUMAB
     Indication: Chronic sinusitis
  3. DUPIXENT [Suspect]
     Active Substance: DUPILUMAB
     Indication: Nasal turbinate hypertrophy

REACTIONS (3)
  - Hypersensitivity [Unknown]
  - Nasal polyps [Unknown]
  - Product use in unapproved indication [Unknown]

NARRATIVE: CASE EVENT DATE: 20230801
